FAERS Safety Report 5592250-6 (Version None)
Quarter: 2008Q1

REPORT INFORMATION
  Report Type: 
  Country: None (occurrence: None)
  Receive Date: 20080115
  Receipt Date: 20071231
  Transmission Date: 20080703
  Serious: Yes (Hospitalization)
  Sender: FDA-Public Use
  Company Number: US-GILEAD-2008-0014921

PATIENT
  Sex: Female
  Weight: 83.99 kg

DRUGS (3)
  1. LETAIRIS [Suspect]
     Indication: PULMONARY HYPERTENSION
     Route: 048
     Dates: start: 20071217, end: 20071220
  2. LASIX [Concomitant]
     Route: 048
     Dates: end: 20071201
  3. LASIX [Concomitant]
     Route: 048
     Dates: start: 20071201

REACTIONS (4)
  - DYSPNOEA [None]
  - OEDEMA [None]
  - PULMONARY MASS [None]
  - WEIGHT INCREASED [None]
